FAERS Safety Report 19881868 (Version 2)
Quarter: 2021Q3

REPORT INFORMATION
  Report Type: Spontaneous
  Country: DE (occurrence: DE)
  Receive Date: 20210924
  Receipt Date: 20210929
  Transmission Date: 20211014
  Serious: Yes (Death, Other)
  Sender: FDA-Public Use
  Company Number: DE-ALXN-A202110552

PATIENT
  Age: 91 Year
  Sex: Female

DRUGS (1)
  1. ONDEXXYA [Suspect]
     Active Substance: ANDEXANET ALFA
     Indication: PROCOAGULANT THERAPY
     Dosage: UNK
     Route: 065

REACTIONS (1)
  - Central nervous system lesion [Fatal]
